FAERS Safety Report 19132646 (Version 2)
Quarter: 2022Q1

REPORT INFORMATION
  Report Type: Other
  Country: US (occurrence: US)
  Receive Date: 20210413
  Receipt Date: 20220309
  Transmission Date: 20220423
  Serious: Yes (Disabling)
  Sender: FDA-Public Use
  Company Number: US-C B FLEET CO INC-202104-US-001296

PATIENT
  Age: 73 Year
  Sex: Female
  Weight: 56.7 kg

DRUGS (14)
  1. FLEET MINERAL OIL [Suspect]
     Active Substance: MINERAL OIL
     Indication: Product used for unknown indication
     Route: 054
     Dates: start: 20200824, end: 20200824
  2. KETOROLAC [Concomitant]
     Active Substance: KETOROLAC TROMETHAMINE
     Dosage: 30 MILLIGRAMS (MG) INTRAVENOUS (IV).
     Route: 042
  3. SODIUM CHLORIDE [Concomitant]
     Active Substance: SODIUM CHLORIDE
     Dosage: 50 MILLILITERS INTRAVENOUS
     Route: 042
  4. Nitronox [Concomitant]
  5. UNSPECIFIED INGREDIENT [Concomitant]
     Active Substance: UNSPECIFIED INGREDIENT
     Dosage: 24 HOURS
  6. DVT mechanical prophylaxis [Concomitant]
     Dosage: STARTING TONIGHT
  7. chemo prophylaxis [Concomitant]
  8. OXYCODONE AND ACETAMINOPHEN [Concomitant]
     Active Substance: ACETAMINOPHEN\OXYCODONE HYDROCHLORIDE
     Indication: Pain
     Dosage: 1 TAB Q4H PRN PAIN
     Route: 048
  9. SODIUM CHLORIDE [Concomitant]
     Active Substance: SODIUM CHLORIDE
     Dosage: 2.5 ML Q8 AT START; SODIUM CHLORIDE 1,000 ML @ 75 MLS/HR  Q13H20M
     Route: 042
  10. ACETAMINOPHEN [Concomitant]
     Active Substance: ACETAMINOPHEN
     Dosage: 650MG Q4H PRN
     Route: 048
  11. NALOXONE [Concomitant]
     Active Substance: NALOXONE
     Dosage: O.4MG Q2M PRN
  12. ONDANSETRON [Concomitant]
     Active Substance: ONDANSETRON
     Dosage: 4 MG Q4H PRN
  13. MORPHINE SULFATE [Concomitant]
     Active Substance: MORPHINE SULFATE
     Dosage: 4MG Q4H PRN
  14. ASPIRIN [Concomitant]
     Active Substance: ASPIRIN
     Indication: Thrombosis prophylaxis
     Dosage: 81 MILLIGRAM
     Route: 048

REACTIONS (4)
  - Fall [Recovered/Resolved]
  - Lower limb fracture [Recovered/Resolved]
  - Arthralgia [Recovered/Resolved]
  - Product used for unknown indication [None]
